FAERS Safety Report 5040737-7 (Version None)
Quarter: 2006Q3

REPORT INFORMATION
  Report Type: 
  Country: None (occurrence: None)
  Receive Date: 20060703
  Receipt Date: 20060516
  Transmission Date: 20061208
  Serious: Yes (Other)
  Sender: FDA-Public Use
  Company Number: PHNU2006DE02022

PATIENT
  Age: 61 Year
  Sex: Male
  Weight: 133 kg

DRUGS (7)
  1. XANEF [Concomitant]
     Indication: CARDIAC FAILURE
     Dosage: 20 MG DAILY
     Route: 048
     Dates: start: 20060321
  2. CONCOR COR [Concomitant]
     Indication: CARDIAC FAILURE
     Dosage: 2.5 MG DAILY
     Route: 048
  3. L-THYROXINE [Concomitant]
     Indication: HYPOTHYROIDISM
     Dosage: 100 MICROGR DAILY
     Route: 048
  4. METAMIZOLE [Concomitant]
     Indication: GOITRE
     Dosage: 30 DROPS DAILY
     Route: 048
     Dates: start: 20060201
  5. SANDIMMUNE [Suspect]
     Indication: HEART TRANSPLANT
     Dosage: 150/0/175MG/DAY
     Route: 048
     Dates: start: 19930101
  6. AMOXICILLIN + CLAVULANATE POTASSIUM [Suspect]
     Indication: ERYSIPELAS
     Dosage: 500 MG, TID
     Route: 048
     Dates: start: 20060309
  7. ALLOPURINOL [Concomitant]

REACTIONS (12)
  - ARRHYTHMIA [None]
  - CARDIAC FAILURE [None]
  - DIABETIC NEPHROPATHY [None]
  - DRUG HYPERSENSITIVITY [None]
  - DRUG INTERACTION [None]
  - ERYSIPELAS [None]
  - GAMMA-GLUTAMYLTRANSFERASE INCREASED [None]
  - GOITRE [None]
  - HEPATIC CONGESTION [None]
  - HYPOGLYCAEMIA [None]
  - RENAL FAILURE [None]
  - SEPSIS [None]
